FAERS Safety Report 15281902 (Version 1)
Quarter: 2018Q3

REPORT INFORMATION
  Report Type: Spontaneous
  Country: CA (occurrence: CA)
  Receive Date: 20180815
  Receipt Date: 20180815
  Transmission Date: 20181010
  Serious: Yes (Hospitalization)
  Sender: FDA-Public Use
  Company Number: CA-CELGENEUS-CAN-20180803150

PATIENT
  Age: 65 Year
  Sex: Male

DRUGS (2)
  1. DEXAMETHASONE. [Suspect]
     Active Substance: DEXAMETHASONE
     Indication: PRODUCT USED FOR UNKNOWN INDICATION
     Route: 065
  2. POMALYST [Suspect]
     Active Substance: POMALIDOMIDE
     Indication: AMYLOIDOSIS
     Dosage: 3 MILLIGRAM
     Route: 048
     Dates: start: 20180719

REACTIONS (7)
  - Sepsis [Recovered/Resolved]
  - Atrial fibrillation [Recovered/Resolved]
  - Aspiration [Recovered/Resolved]
  - Thrombosis [Recovered/Resolved]
  - Fluid retention [Recovered/Resolved]
  - Pneumonia aspiration [Recovered/Resolved]
  - Vein disorder [Recovered/Resolved]

NARRATIVE: CASE EVENT DATE: 20180802
